FAERS Safety Report 7627336-5 (Version None)
Quarter: 2011Q3

REPORT INFORMATION
  Report Type: 
  Country: None (occurrence: None)
  Receive Date: 20110721
  Receipt Date: 20110516
  Transmission Date: 20111222
  Serious: No
  Sender: FDA-Public Use
  Company Number: US-BAYER-2011-043530

PATIENT
  Age: 71 Year
  Sex: Male

DRUGS (3)
  1. BLOOD PRESSURE MEDICATION (NOS) [Concomitant]
  2. ALEVE (CAPLET) [Suspect]
     Indication: BACK PAIN
     Dosage: BOTTLE COUNT 200S
     Route: 048
     Dates: start: 20110509
  3. DIURETICS [Concomitant]

REACTIONS (1)
  - BACK PAIN [None]
